FAERS Safety Report 19614778 (Version 1)
Quarter: 2021Q3

REPORT INFORMATION
  Report Type: Spontaneous
  Country: US (occurrence: US)
  Receive Date: 20210726
  Receipt Date: 20210726
  Transmission Date: 20211014
  Serious: No
  Sender: FDA-Public Use
  Company Number: None

PATIENT
  Age: 74 Year
  Sex: Male
  Weight: 134 kg

DRUGS (1)
  1. PERFLUTREN (PERFLUTREN LIPID MICROSPHERE INJ, 2ML) [Suspect]
     Active Substance: PERFLUTREN
     Indication: ECHOCARDIOGRAM
     Dates: start: 20210625, end: 20210625

REACTIONS (6)
  - Back pain [None]
  - Agitation [None]
  - Respiratory distress [None]
  - Myalgia [None]
  - Renal pain [None]
  - Dyspnoea [None]

NARRATIVE: CASE EVENT DATE: 20210625
